FAERS Safety Report 22217155 (Version 6)
Quarter: 2025Q4

REPORT INFORMATION
  Report Type: Report from Study
  Country: US (occurrence: US)
  Receive Date: 20230417
  Receipt Date: 20251205
  Transmission Date: 20260117
  Serious: Yes (Hospitalization, Other)
  Sender: ABBVIE
  Company Number: US-ABBVIE-4730562

PATIENT
  Age: 70 Year
  Sex: Male

DRUGS (2)
  1. SKYRIZI [Suspect]
     Active Substance: RISANKIZUMAB-RZAA
     Indication: Psoriasis
     Route: 058
     Dates: start: 20201130
  2. SKYRIZI [Suspect]
     Active Substance: RISANKIZUMAB-RZAA
     Dosage: LAST ADMIN DATE NOV 2020
     Route: 058
     Dates: start: 20201113

REACTIONS (7)
  - Sepsis [Recovering/Resolving]
  - Coronary artery occlusion [Recovered/Resolved]
  - Haematological infection [Recovered/Resolved]
  - Back pain [Recovering/Resolving]
  - Arrhythmia [Unknown]
  - Blood pressure decreased [Unknown]
  - Atrial fibrillation [Unknown]

NARRATIVE: CASE EVENT DATE: 20230201
